FAERS Safety Report 17220737 (Version 2)
Quarter: 2020Q1

REPORT INFORMATION
  Report Type: Spontaneous
  Country: JP (occurrence: JP)
  Receive Date: 20191231
  Receipt Date: 20200108
  Transmission Date: 20200409
  Serious: Yes (Other)
  Sender: FDA-Public Use
  Company Number: JP-PFIZER INC-2019559500

PATIENT
  Age: 66 Year
  Sex: Male

DRUGS (1)
  1. MEROPENEM. [Suspect]
     Active Substance: MEROPENEM
     Indication: CHOLECYSTITIS ACUTE
     Dosage: UNK
     Route: 041

REACTIONS (5)
  - Pleural effusion [Unknown]
  - Lymphadenopathy [Unknown]
  - Ascites [Unknown]
  - Renal disorder [Recovering/Resolving]
  - Hepatosplenomegaly [Unknown]
